FAERS Safety Report 6041419-5 (Version None)
Quarter: 2009Q1

REPORT INFORMATION
  Report Type: 
  Country: None (occurrence: None)
  Receive Date: 20090116
  Receipt Date: 20080913
  Transmission Date: 20090719
  Serious: No
  Sender: FDA-Public Use
  Company Number: US-BRISTOL-MYERS SQUIBB COMPANY-14368021

PATIENT
  Age: 11 Year
  Sex: Female
  Weight: 58 kg

DRUGS (1)
  1. ABILIFY [Suspect]
     Indication: POST-TRAUMATIC STRESS DISORDER
     Dosage: 5 MG TAKEN PREVIOUSLY.

REACTIONS (6)
  - BACK PAIN [None]
  - DIZZINESS [None]
  - DYSARTHRIA [None]
  - FALL [None]
  - LETHARGY [None]
  - SOMNOLENCE [None]
